FAERS Safety Report 18211606 (Version 3)
Quarter: 2020Q4

REPORT INFORMATION
  Report Type: Spontaneous
  Country: US (occurrence: US)
  Receive Date: 20200831
  Receipt Date: 20201018
  Transmission Date: 20210113
  Serious: Yes (Death, Life-Threatening, Hospitalization, Other)
  Sender: FDA-Public Use
  Company Number: US-LUPIN PHARMACEUTICALS INC.-2020-05206

PATIENT
  Age: 28 Year
  Sex: Male

DRUGS (2)
  1. OXYCODONE [Suspect]
     Active Substance: OXYCODONE
     Indication: ANALGESIC THERAPY
  2. OXYCODONE [Suspect]
     Active Substance: OXYCODONE
     Indication: PAIN
     Dosage: 10 MILLIGRAM, SINGLE (OXYCODONE DOSES EQUAL TO 10MG (DOSE STATED BY PATIENT) WERE CRUSHED, MIXED WIT
     Route: 054

REACTIONS (7)
  - Incorrect product dosage form administered [Unknown]
  - Intentional product use issue [Unknown]
  - Intentional overdose [Unknown]
  - Depressed level of consciousness [Recovered/Resolved]
  - Death [Fatal]
  - Intentional product misuse [Unknown]
  - Unresponsive to stimuli [Recovered/Resolved]
